FAERS Safety Report 5504732-3 (Version None)
Quarter: 2007Q4

REPORT INFORMATION
  Report Type: 
  Country: None (occurrence: None)
  Receive Date: 20071031
  Receipt Date: 20071016
  Transmission Date: 20080405
  Serious: Yes (Death)
  Sender: FDA-Public Use
  Company Number: B0492666A

PATIENT
  Age: 19 Year
  Sex: Female

DRUGS (8)
  1. AMOXICILLIN TRIHYDRATE [Suspect]
     Indication: PYELONEPHRITIS
     Route: 042
  2. AMOXICILLIN + CLAVULANATE POTASSIUM [Suspect]
     Indication: PYELONEPHRITIS
  3. GENTAMICIN SULFATE [Suspect]
     Indication: PYREXIA
  4. DOPAMINE (FORMULATION UNKNOWN) (DOPAMINE) [Suspect]
  5. NORADRENALINE (FORMULATION UNKNOWN) (NOREPINEPHRINE) [Suspect]
  6. COLLOIDAL PLASMA EXPANDER (FORMULATION UNKNOWN) (COLLOIDAL PLASMA EXPA [Suspect]
  7. OXYCONTIN [Suspect]
  8. SULPROSTONE (FORMULATION UNKNOWN) (SULPROSTONE) [Suspect]

REACTIONS (11)
  - ACUTE RESPIRATORY DISTRESS SYNDROME [None]
  - ANAEMIA [None]
  - DISSEMINATED INTRAVASCULAR COAGULATION [None]
  - DRUG EXPOSURE DURING PREGNANCY [None]
  - DRUG INEFFECTIVE [None]
  - MATERNAL CONDITION AFFECTING FOETUS [None]
  - MULTI-ORGAN FAILURE [None]
  - PROTHROMBIN TIME PROLONGED [None]
  - SEPTIC SHOCK [None]
  - STILLBIRTH [None]
  - UROSEPSIS [None]
